FAERS Safety Report 8831573 (Version 1)
Quarter: 2012Q4

REPORT INFORMATION
  Report Type: 
  Country: US (occurrence: US)
  Receive Date: 20121009
  Receipt Date: 20121009
  Transmission Date: 20130627
  Serious: No
  Sender: FDA-Public Use
  Company Number: US-ASTRAZENECA-2011SE47719

PATIENT
  Age: 51 Year
  Sex: Female
  Weight: 88.5 kg

DRUGS (3)
  1. SEROQUEL [Suspect]
     Route: 048
     Dates: end: 2010
  2. SEROQUEL [Suspect]
     Route: 048
     Dates: start: 2010
  3. SEROQUEL [Suspect]
     Route: 048

REACTIONS (2)
  - Hearing impaired [Unknown]
  - Sedation [Unknown]
